FAERS Safety Report 8594737 (Version 4)
Quarter: 2013Q2

REPORT INFORMATION
  Report Type: Report from Study
  Country: US (occurrence: US)
  Receive Date: 20120604
  Receipt Date: 20130402
  Transmission Date: 20140414
  Serious: Yes (Life-Threatening, Hospitalization)
  Sender: FDA-Public Use
  Company Number: US-JNJFOC-20120518969

PATIENT
  Age: 16 Year
  Sex: Female
  Weight: 97.52 kg

DRUGS (26)
  1. REMICADE [Suspect]
     Indication: COLITIS ULCERATIVE
     Dosage: 5MG/KG
     Route: 042
     Dates: start: 20120202
  2. REMICADE [Suspect]
     Indication: COLITIS ULCERATIVE
     Dosage: 2ND DOSE ALSO REPORTED AS 12 DAYS LATER (CONFLICTING INFORMATION), DATE ALSO REPORTED AS 16-FEB-2012
     Route: 042
     Dates: start: 20120215, end: 201202
  3. METHYLPREDNISOLONE [Concomitant]
     Indication: COLITIS ULCERATIVE
  4. METHYLPREDNISOLONE [Concomitant]
     Indication: COLITIS ULCERATIVE
     Dates: start: 20120127, end: 20120203
  5. FLAGYL [Concomitant]
  6. SYNTHROID [Concomitant]
     Indication: HYPOTHYROIDISM
     Dosage: 188 MICROGRAMS DAILY
     Dates: start: 2010
  7. SYNTHROID [Concomitant]
     Indication: HYPOTHYROIDISM
     Dosage: 200 MICROGRAMS DAILY
     Dates: start: 2010
  8. MESALAMINE [Concomitant]
     Indication: INFLAMMATORY BOWEL DISEASE
  9. MESALAMINE [Concomitant]
     Indication: INFLAMMATORY BOWEL DISEASE
     Dates: start: 20120124, end: 20120206
  10. MESALAMINE [Concomitant]
     Indication: INFLAMMATORY BOWEL DISEASE
  11. MULTIVITAMINS [Concomitant]
     Indication: MEDICAL DIET
  12. PANTOPRAZOLE [Concomitant]
     Indication: GASTRITIS
  13. PANTOPRAZOLE [Concomitant]
     Indication: GASTRITIS
     Dates: start: 20120127, end: 20120229
  14. PANTOPRAZOLE [Concomitant]
     Indication: GASTROOESOPHAGEAL REFLUX DISEASE
     Dates: start: 20120127, end: 20120229
  15. PANTOPRAZOLE [Concomitant]
     Indication: GASTROOESOPHAGEAL REFLUX DISEASE
  16. NUBAIN [Concomitant]
     Indication: PAIN
     Dosage: Q3HRPRN
     Route: 042
  17. PANTOPRAZOLE [Concomitant]
     Indication: GASTRITIS
     Route: 042
  18. TPN [Concomitant]
     Indication: MEDICAL DIET
  19. CLINDAMYCIN [Concomitant]
     Indication: SUBCUTANEOUS ABSCESS
     Dates: start: 20120208, end: 20120218
  20. PREDNISOLONE [Concomitant]
     Dosage: WEANED BY 5MG EACH WEEK
  21. PROBIOTIC [Concomitant]
     Dosage: PROBIOTIC VSL 3
  22. FISH OIL [Concomitant]
  23. 6-MERCAPTOPURINE [Concomitant]
  24. PREVACID [Concomitant]
     Indication: INFLAMMATORY BOWEL DISEASE
  25. OMEPRAZOLE [Concomitant]
  26. SOLU-MEDROL [Concomitant]
     Indication: INFLAMMATORY BOWEL DISEASE
     Route: 042
     Dates: start: 20110126

REACTIONS (21)
  - Posterior reversible encephalopathy syndrome [Recovered/Resolved]
  - Cellulitis [Unknown]
  - Brain oedema [Recovered/Resolved]
  - Systemic inflammatory response syndrome [Recovered/Resolved]
  - Septic shock [Unknown]
  - Endotracheal intubation [Recovered/Resolved]
  - Renal failure [Recovered/Resolved]
  - Asthenia [Recovered/Resolved]
  - Hallucination [Recovered/Resolved]
  - Exercise tolerance decreased [Recovered/Resolved]
  - Convulsion [Recovered/Resolved]
  - Colitis ulcerative [Recovered/Resolved]
  - Drug ineffective [Recovered/Resolved]
  - Syncope [Recovering/Resolving]
  - Bradycardia [Unknown]
  - Hypertension [Unknown]
  - Respiratory failure [Unknown]
  - Multi-organ failure [Unknown]
  - Pneumothorax [Unknown]
  - Nervous system disorder [Unknown]
  - Vomiting [Unknown]
